FAERS Safety Report 16851590 (Version 1)
Quarter: 2019Q3

REPORT INFORMATION
  Report Type: Report from Study
  Country: PE (occurrence: PE)
  Receive Date: 20190925
  Receipt Date: 20190925
  Transmission Date: 20191005
  Serious: Yes (Other)
  Sender: FDA-Public Use
  Company Number: PE-SA-2019SA262490

PATIENT
  Age: 81 Year
  Sex: Female

DRUGS (8)
  1. NEBIVOLOL. [Concomitant]
     Active Substance: NEBIVOLOL
     Dosage: UNK UNK, UNK
     Route: 065
  2. CARDIOASPIRIN [Concomitant]
     Active Substance: ASPIRIN
     Dosage: 100 MGMONDAY, WEDNESDAY AND SATURDAY (1PM) ORALLY EACH 2 WEEKS
     Route: 048
  3. ULTANE [Concomitant]
     Active Substance: SEVOFLURANE
     Dosage: 5 MG, QD SINCE JUL 31, 2015
     Route: 048
  4. ACETYLSALICYLIC ACID [Concomitant]
     Active Substance: ASPIRIN
     Dosage: UNK UNK, UNK
     Route: 065
  5. NABILA [MEMANTINE HYDROCHLORIDE] [Concomitant]
     Dosage: 5 MG, QD UNTIL 11-AUG-2019
     Route: 048
  6. IRBESARTAN. [Suspect]
     Active Substance: IRBESARTAN
     Indication: HYPERTENSION
     Dosage: 150 MG, QD
     Route: 048
     Dates: start: 20150731
  7. ENALAPRIL [Concomitant]
     Active Substance: ENALAPRIL
     Indication: HYPERTENSION
     Dosage: UNK UNK, TID STOP DATE: JUL-2015
     Route: 048
  8. AMLODIPINE [Concomitant]
     Active Substance: AMLODIPINE BESYLATE
     Dosage: UNK UNK, UNK
     Route: 065

REACTIONS (5)
  - Syncope [Recovering/Resolving]
  - Peripheral swelling [Recovering/Resolving]
  - Arrhythmia [Unknown]
  - Fluid retention [Recovering/Resolving]
  - Blood pressure increased [Recovering/Resolving]

NARRATIVE: CASE EVENT DATE: 20190811
